FAERS Safety Report 4534587-5 (Version None)
Quarter: 2004Q4

REPORT INFORMATION
  Report Type: 
  Country: None (occurrence: None)
  Receive Date: 20041214
  Receipt Date: 20040723
  Transmission Date: 20050328
  Serious: No
  Sender: FDA-Public Use
  Company Number: USA040773144

PATIENT
  Age: 73 Year
  Sex: Male
  Weight: 91 kg

DRUGS (3)
  1. CIALIS [Suspect]
     Indication: ERECTILE DYSFUNCTION
     Dosage: 20 MG AS NEEDED
     Dates: start: 20040709
  2. ATACAND [Concomitant]
  3. LIPITOR [Concomitant]

REACTIONS (3)
  - CHROMATOPSIA [None]
  - DRUG INEFFECTIVE [None]
  - VISION BLURRED [None]
